FAERS Safety Report 11219801 (Version 1)
Quarter: 2015Q2

REPORT INFORMATION
  Report Type: Spontaneous
  Country: AU (occurrence: None)
  Receive Date: 20150624
  Receipt Date: 20150624
  Transmission Date: 20150821
  Serious: Yes (Disabling)
  Sender: FDA-Public Use
  Company Number: None

PATIENT
  Age: 20 Year
  Sex: Male
  Weight: 92 kg

DRUGS (4)
  1. VITAMIN B12 [Concomitant]
     Active Substance: CYANOCOBALAMIN
  2. COQ10 [Concomitant]
     Active Substance: UBIDECARENONE
  3. FINASTERIDE 2.5MG UNCERTAIN [Suspect]
     Active Substance: FINASTERIDE
     Indication: ANDROGENETIC ALOPECIA
     Route: 048
  4. MAGNESIUM [Concomitant]
     Active Substance: MAGNESIUM

REACTIONS (12)
  - Suicidal ideation [None]
  - Erectile dysfunction [None]
  - Genital hypoaesthesia [None]
  - Depressed level of consciousness [None]
  - Testicular atrophy [None]
  - Loss of libido [None]
  - Amnesia [None]
  - Anxiety [None]
  - Ejaculation failure [None]
  - Blunted affect [None]
  - Fatigue [None]
  - Quality of life decreased [None]

NARRATIVE: CASE EVENT DATE: 20141017
